FAERS Safety Report 26097401 (Version 1)
Quarter: 2025Q4

REPORT INFORMATION
  Report Type: Spontaneous
  Country: US (occurrence: US)
  Receive Date: 20251127
  Receipt Date: 20251127
  Transmission Date: 20260118
  Serious: Yes (Other)
  Sender: RADIUS PHARM
  Company Number: US-RADIUS HEALTH INC.-US-RADIUS-25049165

PATIENT
  Age: 67 Year
  Sex: Female

DRUGS (3)
  1. TYMLOS [Suspect]
     Active Substance: ABALOPARATIDE
     Indication: Osteoporosis
     Dosage: 80 MICROGRAM, QD
     Route: 058
     Dates: start: 202412
  2. TYMLOS [Suspect]
     Active Substance: ABALOPARATIDE
     Dosage: LOWER DOSE, QD
     Route: 058
  3. TYMLOS [Suspect]
     Active Substance: ABALOPARATIDE
     Dosage: UNK
     Route: 058

REACTIONS (6)
  - Lower limb fracture [Unknown]
  - Adverse drug reaction [Unknown]
  - Discomfort [Unknown]
  - Device delivery system issue [Unknown]
  - Intentional product use issue [Unknown]
  - Drug dose omission by device [Unknown]

NARRATIVE: CASE EVENT DATE: 20250527
